FAERS Safety Report 8296850-4 (Version None)
Quarter: 2012Q2

REPORT INFORMATION
  Report Type: 
  Country: None (occurrence: None)
  Receive Date: 20120419
  Receipt Date: 20120404
  Transmission Date: 20120825
  Serious: Yes (Other)
  Sender: FDA-Public Use
  Company Number: PL-AMGEN-POLSP2012018175

PATIENT
  Age: 5 Year
  Sex: Female
  Weight: 20.1 kg

DRUGS (3)
  1. METHOTREXATE [Concomitant]
     Dosage: UNK
     Route: 048
     Dates: start: 20090101
  2. ENBREL [Suspect]
     Indication: JUVENILE ARTHRITIS
     Dosage: 8 MG, 2X/WEEK
     Route: 058
     Dates: start: 20111215, end: 20120109
  3. ENCORTON                           /00044702/ [Concomitant]
     Dosage: UNK
     Route: 048
     Dates: start: 20070101

REACTIONS (4)
  - PRURITUS [None]
  - SWELLING [None]
  - ERYTHEMA [None]
  - FEELING HOT [None]
